FAERS Safety Report 15191848 (Version 1)
Quarter: 2018Q3

REPORT INFORMATION
  Report Type: Spontaneous
  Country: US (occurrence: US)
  Receive Date: 20180626
  Receipt Date: 20180626
  Transmission Date: 20181010
  Serious: Yes (Other)
  Sender: FDA-Public Use
  Company Number: None

PATIENT
  Age: 62 Year
  Sex: Female
  Weight: 73.35 kg

DRUGS (9)
  1. VITAMIN B12 [Concomitant]
     Active Substance: CYANOCOBALAMIN
  2. FLUTICASONE. [Concomitant]
     Active Substance: FLUTICASONE
  3. IPRATROPIUM [Concomitant]
     Active Substance: IPRATROPIUM
  4. TARCEVA [Suspect]
     Active Substance: ERLOTINIB HYDROCHLORIDE
     Indication: LUNG NEOPLASM MALIGNANT
     Route: 048
     Dates: start: 20180330
  5. FOLIC ACID. [Concomitant]
     Active Substance: FOLIC ACID
  6. ARTIFICIAL TEARS [Concomitant]
     Active Substance: GLYCERIN\HYPROMELLOSES\POLYETHYLENE GLYCOL 400
  7. ATORVASTATIN [Concomitant]
     Active Substance: ATORVASTATIN
  8. ONDANSETRON [Concomitant]
     Active Substance: ONDANSETRON
  9. ZYRTEC [Concomitant]
     Active Substance: CETIRIZINE HYDROCHLORIDE

REACTIONS (1)
  - Rash [None]
